FAERS Safety Report 5030699-0 (Version None)
Quarter: 2006Q2

REPORT INFORMATION
  Report Type: 
  Country: None (occurrence: None)
  Receive Date: 20060615
  Receipt Date: 20060605
  Transmission Date: 20061013
  Serious: Yes (Hospitalization)
  Sender: FDA-Public Use
  Company Number: S06-FRA-02369-01

PATIENT
  Age: 40 Year
  Sex: Female

DRUGS (3)
  1. SEROPLEX (ESCITALOPRAM) [Suspect]
     Dosage: 5 MG QD PO
     Route: 048
  2. SEROPLEX (ESCITALOPRAM) [Suspect]
     Dosage: 10 MG QD PO
     Route: 048
  3. SEROPLEX (ESCITALOPRAM) [Suspect]
     Dosage: 20 MG QD PO
     Route: 048

REACTIONS (1)
  - RETINAL VEIN OCCLUSION [None]
